FAERS Safety Report 5941858-4 (Version None)
Quarter: 2008Q4

REPORT INFORMATION
  Report Type: 
  Country: None (occurrence: None)
  Receive Date: 20081031
  Receipt Date: 20081021
  Transmission Date: 20090506
  Serious: Yes (Hospitalization)
  Sender: FDA-Public Use
  Company Number: 2008BI024992

PATIENT
  Age: 60 Year
  Sex: Female
  Weight: 70.3075 kg

DRUGS (18)
  1. AVONEX [Suspect]
     Indication: MULTIPLE SCLEROSIS
     Dosage: 30 UG; QW; IM
     Route: 030
     Dates: start: 20080326
  2. PROMETHAZINE [Concomitant]
  3. DYAZIDE [Concomitant]
  4. CLONAZEPAM [Concomitant]
  5. GABAPENTIN [Concomitant]
  6. FORTICAL [Concomitant]
  7. PRAVACHOL [Concomitant]
  8. LYRICA [Concomitant]
  9. METFORMIN HCL [Concomitant]
  10. CYMBALTA [Concomitant]
  11. LISINOPRIL [Concomitant]
  12. ASPIRIN [Concomitant]
  13. CLARITIN [Concomitant]
  14. BENADRYL [Concomitant]
  15. TUMS [Concomitant]
  16. IPRATROPIUM BROMIDE [Concomitant]
  17. LOMOTIL [Concomitant]
  18. FENTANYL [Concomitant]

REACTIONS (9)
  - ASTHENIA [None]
  - ATAXIA [None]
  - COGNITIVE DISORDER [None]
  - DEHYDRATION [None]
  - MYALGIA [None]
  - NAUSEA [None]
  - PAIN [None]
  - STRESS [None]
  - THINKING ABNORMAL [None]
